FAERS Safety Report 5233112-3 (Version None)
Quarter: 2007Q1

REPORT INFORMATION
  Report Type: 
  Country: None (occurrence: None)
  Receive Date: 20061204
  Receipt Date: 20061018
  Transmission Date: 20070707
  Serious: No
  Sender: FDA-Public Use
  Company Number: 2006-BP-12344PF

PATIENT

DRUGS (2)
  1. SPIRIVA [Suspect]
     Dosage: (18 MCG),IH
     Dates: start: 20050101
  2. ALPHA 1(ALL OTHER THERAPEUTIC PRODUCTS) [Concomitant]

REACTIONS (1)
  - APHONIA [None]
